FAERS Safety Report 9521596 (Version 1)
Quarter: 2013Q1

REPORT INFORMATION
  Report Type: Spontaneous
  Country: US (occurrence: None)
  Receive Date: 20130305
  Receipt Date: 20130305
  Transmission Date: 20140127
  Serious: Yes (Other)
  Sender: FDA-Public Use
  Company Number: 163-21880-12073238

PATIENT
  Age: 64 Year
  Sex: Female

DRUGS (30)
  1. REVLIMID (LENALIDOMIDE) (CAPSULES) [Suspect]
     Indication: MYELODYSPLASTIC SYNDROME
     Route: 048
     Dates: start: 20120703, end: 20120724
  2. LEVAQUIN (LEVOFLOXACIN) (TABLETS) [Concomitant]
  3. ACYCLOVIR (ACICLOVIR) (ACICLOVIR) [Concomitant]
  4. LEVOTHYROXINE (LEVOTHYROXINE) [Concomitant]
  5. VITAMIN B12 (CYANOCOBALAMIN) [Concomitant]
  6. AFRIN (OXYMETAZOLE) [Concomitant]
  7. ACETAMINOPHEN-CODEINE (PANADEINE CO) (TABLETS) [Concomitant]
  8. ADULT LOW DOSE ASPIRIN (ACETYLSALICYLIC ACID) [Concomitant]
  9. VALACYCLOVIR (VALACICLOR HYDROCHLORIDE) (TABLETS) [Concomitant]
  10. DIAZEPAM (DIAZEPAM) (TABLETS) [Concomitant]
  11. PAROXETINE HCL (PAROXETINE HYDROCHLORIDE) (TABLETS) [Concomitant]
  12. HYDROCODONE-ACETAMINOPHEN (REMEDEINE) (TABLETS) [Concomitant]
  13. AMITRIPTYLINE-CHLOR (AMITRIPTYLINE HYDROCHLORIDE) [Concomitant]
  14. CHLOROTHIAZIDE (CHLOROTHIAZIDE) [Concomitant]
  15. CYANOCOBALAMIN (CYANOCOBALAMIN) [Concomitant]
  16. VITAMIN D3 (COLECALCIFEROL) [Concomitant]
  17. GABAPENTIN (GABAPENTIN)? [Concomitant]
  18. GLIPIZIDE (GLIPIZIDE) [Concomitant]
  19. LISINOPRIL (LISINOPRIL) [Concomitant]
  20. METFORMIN (METFORMIN) [Concomitant]
  21. FISH OIL (FISH OIL) [Concomitant]
  22. PRILOSEC [Concomitant]
  23. PAXIL (PAROXETINE HYDROCHLORIDE) [Concomitant]
  24. POTASSIUM CHLORIDE (POTASSIUM CHLORIDE) [Concomitant]
  25. RISPERDAL (RISPERIDONE) [Concomitant]
  26. SIMVASTATIN (SIMVASTATIN) [Concomitant]
  27. THIAMINE HCL (THIAMINE HYDROCHLORIDE) [Concomitant]
  28. MVI (MVI) [Concomitant]
  29. LIDOCAINE HCL (LIDOCAINE HYDROCHLORIDE) [Concomitant]
  30. PROLIA (DENOSUMAB) [Concomitant]

REACTIONS (4)
  - Pancytopenia [None]
  - White blood cell count decreased [None]
  - Platelet count decreased [None]
  - Oedema peripheral [None]
